FAERS Safety Report 8555444-3 (Version None)
Quarter: 2012Q3

REPORT INFORMATION
  Report Type: 
  Country: None (occurrence: None)
  Receive Date: 20120731
  Receipt Date: 20110825
  Transmission Date: 20120928
  Serious: Yes (Other)
  Sender: FDA-Public Use
  Company Number: US-ASTRAZENECA-2011SE12473

PATIENT

DRUGS (15)
  1. PROMETHAZINE [Concomitant]
     Dates: start: 20020425
  2. ZANAFLEX [Concomitant]
     Dates: start: 20020703
  3. METHADOSE [Concomitant]
     Dates: start: 20020429
  4. MECLIZINE [Concomitant]
     Dates: start: 20020626
  5. SEROQUEL [Suspect]
     Route: 048
     Dates: start: 20020718
  6. ATENOLOL [Concomitant]
     Dates: start: 20020425
  7. PHENTERMINE [Concomitant]
     Dates: start: 20020607
  8. ULTRAM [Concomitant]
     Dates: start: 20020507
  9. ZYPREXA [Concomitant]
     Dates: start: 20020610
  10. METOCLOPRAMIDE [Concomitant]
     Dates: start: 20020425
  11. TOPAMAX [Concomitant]
     Dates: start: 20020501
  12. RANITIDINE [Concomitant]
     Dates: start: 20020605
  13. ALTACE [Concomitant]
     Dates: start: 20020607
  14. HYDROCHLOROTHIAZIDE [Concomitant]
     Dates: start: 20020625
  15. PAXIL [Concomitant]
     Dates: start: 20020531

REACTIONS (3)
  - PANCREATITIS [None]
  - DIABETIC COMA [None]
  - TYPE 2 DIABETES MELLITUS [None]
